FAERS Safety Report 12856411 (Version 1)
Quarter: 2016Q4

REPORT INFORMATION
  Report Type: Spontaneous
  Country: IL (occurrence: IL)
  Receive Date: 20161018
  Receipt Date: 20161018
  Transmission Date: 20170207
  Serious: Yes (Other)
  Sender: FDA-Public Use
  Company Number: IL-009507513-1610ISR005810

PATIENT

DRUGS (1)
  1. KEYTRUDA [Suspect]
     Active Substance: PEMBROLIZUMAB
     Indication: NON-SMALL CELL LUNG CANCER
     Dosage: UNK

REACTIONS (8)
  - Asthenia [Unknown]
  - Constipation [Unknown]
  - Hepatitis [Unknown]
  - Myalgia [Unknown]
  - Nausea [Unknown]
  - Diarrhoea [Unknown]
  - Renal failure [Unknown]
  - Arthralgia [Unknown]
